FAERS Safety Report 7307496-6 (Version None)
Quarter: 2011Q1

REPORT INFORMATION
  Report Type: 
  Country: None (occurrence: None)
  Receive Date: 20110223
  Receipt Date: 20110208
  Transmission Date: 20110831
  Serious: Yes (Hospitalization, Other)
  Sender: FDA-Public Use
  Company Number: GB-RANBAXY-2011R1-41416

PATIENT
  Age: 60 Year
  Sex: Female

DRUGS (15)
  1. ATENOLOL [Suspect]
     Indication: PRODUCT USED FOR UNKNOWN INDICATION
     Dosage: 25 MG, QD
     Route: 048
  2. ZOPICLONE [Suspect]
     Indication: SLEEP DISORDER
     Dosage: 3.75 MG, QD
     Route: 065
  3. DIAZEPAM [Suspect]
     Indication: PRODUCT USED FOR UNKNOWN INDICATION
     Dosage: UNK
     Route: 065
  4. LYRICA [Suspect]
     Route: 065
  5. CITALOPRAM [Suspect]
     Indication: PRODUCT USED FOR UNKNOWN INDICATION
     Dosage: UNK
     Route: 065
  6. SERTRALINE [Suspect]
     Indication: PRODUCT USED FOR UNKNOWN INDICATION
     Dosage: 100 MG, QD
     Route: 065
  7. LYRICA [Suspect]
     Dosage: 100 MG, TID
     Route: 065
     Dates: end: 20100913
  8. PROMETHAZINE [Suspect]
     Indication: SLEEP DISORDER
  9. SERTRALINE [Suspect]
     Dosage: 150 MG, UNK
  10. ASPIRIN [Suspect]
     Indication: PRODUCT USED FOR UNKNOWN INDICATION
     Dosage: 75 MG, QD
     Route: 065
  11. LYRICA [Suspect]
     Dosage: 200 MG, UNK
     Route: 065
  12. SIMVASTATIN [Suspect]
     Indication: PRODUCT USED FOR UNKNOWN INDICATION
     Dosage: 20 MG, QD
     Route: 065
  13. DOSULEPIN [Suspect]
     Indication: DEPRESSION
     Dosage: 50 MG, QD
     Route: 065
  14. LYRICA [Suspect]
     Indication: GENERALISED ANXIETY DISORDER
     Dosage: 50 MG, TID
     Dates: start: 20100501
  15. PROMETHAZINE [Suspect]
     Indication: ANXIETY
     Dosage: 50 MG, UNK
     Route: 065

REACTIONS (27)
  - DIZZINESS [None]
  - INSOMNIA [None]
  - LETHARGY [None]
  - MYALGIA [None]
  - OVERDOSE [None]
  - SUICIDAL IDEATION [None]
  - HYPERHIDROSIS [None]
  - ORAL DISCOMFORT [None]
  - PAIN [None]
  - URINARY TRACT INFECTION [None]
  - AGGRESSION [None]
  - ANXIETY [None]
  - CONFUSIONAL STATE [None]
  - SYNCOPE [None]
  - PANIC ATTACK [None]
  - MALAISE [None]
  - NAUSEA [None]
  - VOMITING [None]
  - WEIGHT DECREASED [None]
  - ANAEMIA [None]
  - HYPOCHONDRIASIS [None]
  - MUSCLE TWITCHING [None]
  - MUSCLE ATROPHY [None]
  - DIARRHOEA [None]
  - TREMOR [None]
  - DECREASED APPETITE [None]
  - DEPRESSION [None]
